FAERS Safety Report 9302913 (Version 1)
Quarter: 2013Q2

REPORT INFORMATION
  Report Type: Spontaneous
  Country: BR (occurrence: BR)
  Receive Date: 20130522
  Receipt Date: 20130522
  Transmission Date: 20140414
  Serious: Yes (Hospitalization)
  Sender: FDA-Public Use
  Company Number: BR-AMGEN-BRASP2013035628

PATIENT
  Age: 48 Year
  Sex: Female
  Weight: 62 kg

DRUGS (4)
  1. ENBREL [Suspect]
     Indication: RHEUMATOID ARTHRITIS
     Dosage: 50 MG, ONCE A WEEK
     Route: 058
     Dates: start: 2011
  2. PREDNISONE [Concomitant]
     Dosage: 10 MG, ONCE A DAY
  3. LOSARTAN [Concomitant]
     Dosage: 50 MG, ONCE A DAY
  4. PARACETAMOL [Concomitant]
     Dosage: 750 MG, ONCE OR TWICE A DAY

REACTIONS (1)
  - Bone disorder [Unknown]
